FAERS Safety Report 7741853-9 (Version None)
Quarter: 2011Q3

REPORT INFORMATION
  Report Type: 
  Country: None (occurrence: None)
  Receive Date: 20110912
  Receipt Date: 20110831
  Transmission Date: 20111222
  Serious: Yes (Other)
  Sender: FDA-Public Use
  Company Number: IT-JNJFOC-20110900009

PATIENT
  Age: 53 Year
  Sex: Female

DRUGS (4)
  1. TRIPTANS [Concomitant]
     Route: 065
  2. NONSTEROIDAL ANTI-INFLAMMATORY DRUGS [Concomitant]
     Route: 065
  3. TOPAMAX [Suspect]
     Indication: MIGRAINE PROPHYLAXIS
     Route: 048
     Dates: start: 20080101
  4. METFORMIN [Concomitant]
     Route: 065

REACTIONS (1)
  - RETINAL VEIN THROMBOSIS [None]
